FAERS Safety Report 17283244 (Version 1)
Quarter: 2020Q1

REPORT INFORMATION
  Report Type: Spontaneous
  Country: US (occurrence: US)
  Receive Date: 20200117
  Receipt Date: 20200117
  Transmission Date: 20200409
  Serious: Yes (Other)
  Sender: FDA-Public Use
  Company Number: US-IPSEN BIOPHARMACEUTICALS, INC.-2020-01132

PATIENT
  Sex: Female

DRUGS (7)
  1. BIOTIN [Concomitant]
     Active Substance: BIOTIN
  2. SERTRALINE [Concomitant]
     Active Substance: SERTRALINE HYDROCHLORIDE
  3. DYSPORT [Suspect]
     Active Substance: ABOBOTULINUMTOXINA
     Indication: OFF LABEL USE
  4. DYSPORT [Suspect]
     Active Substance: ABOBOTULINUMTOXINA
     Indication: SKIN WRINKLING
     Dosage: 25 UNITS
     Route: 030
     Dates: start: 20200109, end: 20200109
  5. BOTOX [Suspect]
     Active Substance: ONABOTULINUMTOXINA
     Indication: SKIN WRINKLING
  6. VITAMIN B [Concomitant]
     Active Substance: VITAMIN B
  7. LOSARTAN. [Concomitant]
     Active Substance: LOSARTAN

REACTIONS (9)
  - Facial paresis [Not Recovered/Not Resolved]
  - Headache [Unknown]
  - Facial paralysis [Not Recovered/Not Resolved]
  - Off label use [Unknown]
  - Tongue movement disturbance [Not Recovered/Not Resolved]
  - Hypoaesthesia [Unknown]
  - Transient ischaemic attack [Unknown]
  - Dysarthria [Not Recovered/Not Resolved]
  - Product preparation error [Unknown]

NARRATIVE: CASE EVENT DATE: 202001
